FAERS Safety Report 8886611 (Version 2)
Quarter: 2012Q4

REPORT INFORMATION
  Report Type: 
  Country: US (occurrence: US)
  Receive Date: 20121105
  Receipt Date: 20121227
  Transmission Date: 20130627
  Serious: Yes (Other)
  Sender: FDA-Public Use
  Company Number: US-PFIZER INC-2012275007

PATIENT
  Age: 51 Year
  Sex: Female
  Weight: 68.03 kg

DRUGS (5)
  1. LYRICA [Suspect]
     Indication: NERVE DAMAGE
     Dosage: 75 mg, 3x/day
     Dates: start: 20121101
  2. CRESTOR [Concomitant]
     Indication: BLOOD CHOLESTEROL ABNORMAL
     Dosage: 10mg by splitting, daily
  3. TOPAMAX [Concomitant]
     Indication: MIGRAINE
     Dosage: 50 mg, 2x/day
  4. SPIRONOLACTONE [Concomitant]
     Indication: BLOOD PRESSURE HIGH
     Dosage: 50 mg, daily
  5. AMBIEN [Concomitant]
     Indication: SLEEP PROBLEM
     Dosage: 10 mg, as needed

REACTIONS (1)
  - Pain [Not Recovered/Not Resolved]
